FAERS Safety Report 7728650-5 (Version None)
Quarter: 2011Q3

REPORT INFORMATION
  Report Type: 
  Country: None (occurrence: None)
  Receive Date: 20110831
  Receipt Date: 20110831
  Transmission Date: 20111222
  Serious: Yes (Life-Threatening)
  Sender: FDA-Public Use
  Company Number: None

PATIENT
  Age: 55 Year
  Sex: Male
  Weight: 102.7 kg

DRUGS (1)
  1. LISINOPRIL [Suspect]
     Indication: CARDIOVASCULAR DISORDER
     Dosage: 10 MG EVERY DAY PO
     Route: 048
     Dates: start: 20110519, end: 20110525

REACTIONS (3)
  - ANGIOEDEMA [None]
  - COUGH [None]
  - RESPIRATORY DISTRESS [None]
